FAERS Safety Report 22020097 (Version 1)
Quarter: 2023Q1

REPORT INFORMATION
  Report Type: Spontaneous
  Country: US (occurrence: None)
  Receive Date: 20230217
  Receipt Date: 20230217
  Transmission Date: 20230417
  Serious: Yes (Other)
  Sender: FDA-Public Use
  Company Number: None

PATIENT
  Age: 45 Year
  Sex: Female
  Weight: 119.7 kg

DRUGS (1)
  1. BENLYSTA [Suspect]
     Active Substance: BELIMUMAB
     Indication: Systemic lupus erythematosus
     Dates: start: 20230216, end: 20230216

REACTIONS (6)
  - Infusion related reaction [None]
  - Anxiety [None]
  - Tremor [None]
  - Tachycardia [None]
  - Hypertension [None]
  - No reaction on previous exposure to drug [None]

NARRATIVE: CASE EVENT DATE: 20230216
